FAERS Safety Report 6906965-8 (Version None)
Quarter: 2010Q3

REPORT INFORMATION
  Report Type: 
  Country: None (occurrence: None)
  Receive Date: 20100804
  Receipt Date: 20071220
  Transmission Date: 20110219
  Serious: No
  Sender: FDA-Public Use
  Company Number: US-PFIZER INC-2007107616

PATIENT
  Sex: Female

DRUGS (2)
  1. NARDIL [Suspect]
  2. CHANTIX [Interacting]

REACTIONS (2)
  - DRUG INTERACTION [None]
  - FEELING ABNORMAL [None]
